FAERS Safety Report 7424066-X (Version None)
Quarter: 2011Q2

REPORT INFORMATION
  Report Type: 
  Country: None (occurrence: None)
  Receive Date: 20110419
  Receipt Date: 20110304
  Transmission Date: 20111010
  Serious: Yes (Hospitalization, Other)
  Sender: FDA-Public Use
  Company Number: US-BAYER-201040538NA

PATIENT
  Age: 22 Year
  Sex: Female
  Weight: 72.562 kg

DRUGS (7)
  1. PLAN B [Concomitant]
     Dosage: 75 MG, UNK
     Dates: start: 20080715, end: 20080922
  2. PLAN B [Concomitant]
     Dosage: 75 MG, UNK
     Dates: start: 20080929
  3. PLAN B [Concomitant]
     Dosage: 75 MG, UNK
     Dates: start: 20080531, end: 20080707
  4. YAZ [Suspect]
     Indication: ACNE
     Dosage: UNK
     Dates: start: 20080709, end: 20090517
  5. YASMIN [Suspect]
     Indication: ACNE
  6. PLAN B [Concomitant]
     Dosage: 75 MG, UNK
     Dates: start: 20071026, end: 20071112
  7. OCELLA [Suspect]
     Indication: ACNE
     Dosage: UNK
     Dates: start: 20070101, end: 20080101

REACTIONS (5)
  - ABDOMINAL PAIN UPPER [None]
  - GALLBLADDER DISORDER [None]
  - CHOLELITHIASIS [None]
  - INJURY [None]
  - CHOLECYSTITIS [None]
